FAERS Safety Report 8077701-X (Version None)
Quarter: 2012Q1

REPORT INFORMATION
  Report Type: 
  Country: None (occurrence: None)
  Receive Date: 20120127
  Receipt Date: 20120125
  Transmission Date: 20120608
  Serious: Yes (Life-Threatening, Hospitalization)
  Sender: FDA-Public Use
  Company Number: GB-PFIZER INC-K200901166

PATIENT
  Age: 78 Year
  Sex: Male

DRUGS (16)
  1. SPIRONOLACTONE [Suspect]
     Indication: ALCOHOLIC LIVER DISEASE
     Dosage: 100 MG, 1X/DAY
     Route: 048
     Dates: end: 20090909
  2. PROPRANOLOL [Concomitant]
     Dosage: UNK
  3. COTRIM [Suspect]
     Indication: PROPHYLAXIS
     Dosage: 1960 MG, 5 TIMES PER WEEK
     Route: 048
     Dates: start: 20090820, end: 20090909
  4. ASPIRIN [Concomitant]
     Dosage: UNK
  5. GLYCERYL TRINITRATE [Concomitant]
     Dosage: UNK
  6. THIAMINE [Concomitant]
     Dosage: UNK
  7. ALTACE [Suspect]
     Indication: HYPERTENSION
     Dosage: 2.5 MG, 1X/DAY
     Route: 048
     Dates: end: 20090909
  8. COTRIM [Suspect]
     Indication: PERITONITIS BACTERIAL
  9. ALLOPURINOL [Concomitant]
     Dosage: UNK
  10. ALTACE [Suspect]
     Indication: MYOCARDIAL ISCHAEMIA
  11. LANSOPRAZOLE [Concomitant]
     Dosage: UNK
  12. TAMSULOSIN [Concomitant]
     Dosage: UNK
  13. LACTULOSE [Concomitant]
     Dosage: UNK
  14. NOVOLOG MIX 70/30 [Concomitant]
     Dosage: UNK
  15. ISOSORBIDE MONONITRATE [Concomitant]
     Dosage: UNK
  16. SUCRALFATE [Concomitant]
     Dosage: UNK

REACTIONS (3)
  - DRUG INTERACTION [None]
  - PERITONITIS BACTERIAL [None]
  - HYPERKALAEMIA [None]
